FAERS Safety Report 5607126-5 (Version None)
Quarter: 2008Q1

REPORT INFORMATION
  Report Type: 
  Country: None (occurrence: None)
  Receive Date: 20080129
  Receipt Date: 20080117
  Transmission Date: 20080703
  Serious: Yes (Other)
  Sender: FDA-Public Use
  Company Number: CA-PFIZER INC-2008006224

PATIENT
  Age: 35 Year
  Sex: Female

DRUGS (2)
  1. CHANTIX [Suspect]
     Route: 048
  2. RISPERDAL [Concomitant]
     Route: 048

REACTIONS (3)
  - FATIGUE [None]
  - LETHARGY [None]
  - PARANOIA [None]
